FAERS Safety Report 5563813-9 (Version None)
Quarter: 2007Q4

REPORT INFORMATION
  Report Type: 
  Country: None (occurrence: None)
  Receive Date: 20071217
  Receipt Date: 20070824
  Transmission Date: 20080405
  Serious: No
  Sender: FDA-Public Use
  Company Number: US-ASTRAZENECA-2007UW20363

PATIENT
  Age: 72 Year
  Sex: Female
  Weight: 80.7 kg

DRUGS (5)
  1. CRESTOR [Suspect]
     Indication: DYSLIPIDAEMIA
     Route: 048
  2. ATACAND [Concomitant]
     Route: 048
  3. SYNTHROID [Concomitant]
  4. VITAMINS [Concomitant]
  5. ASPIRIN [Concomitant]

REACTIONS (3)
  - CONTUSION [None]
  - MUSCLE SPASMS [None]
  - MYALGIA [None]
